FAERS Safety Report 6487151-5 (Version None)
Quarter: 2009Q4

REPORT INFORMATION
  Report Type: 
  Country: None (occurrence: None)
  Receive Date: 20091210
  Receipt Date: 20090808
  Transmission Date: 20100525
  Serious: No
  Sender: FDA-Public Use
  Company Number: US-AMGEN-KDL359352

PATIENT
  Sex: Female

DRUGS (3)
  1. ENBREL [Suspect]
     Indication: PSORIATIC ARTHROPATHY
     Route: 058
     Dates: start: 20090725
  2. PLAQUENIL [Concomitant]
     Dates: start: 20090101
  3. METHOTREXATE [Concomitant]
     Dates: start: 20090101

REACTIONS (2)
  - ABDOMINAL PAIN UPPER [None]
  - DECREASED APPETITE [None]
